FAERS Safety Report 6673920-5 (Version None)
Quarter: 2010Q2

REPORT INFORMATION
  Report Type: 
  Country: None (occurrence: None)
  Receive Date: 20100409
  Receipt Date: 20100401
  Transmission Date: 20101027
  Serious: Yes (Hospitalization)
  Sender: FDA-Public Use
  Company Number: US-BIOGENIDEC-2010BI008320

PATIENT
  Age: 46 Year
  Sex: Female

DRUGS (3)
  1. TYSABRI [Suspect]
     Indication: MULTIPLE SCLEROSIS
     Dates: start: 20050125, end: 20050225
  2. TYSABRI [Suspect]
     Route: 042
     Dates: start: 20060922
  3. NAPROXEN [Concomitant]

REACTIONS (2)
  - CHOLELITHIASIS [None]
  - SENSORY DISTURBANCE [None]
